FAERS Safety Report 7568197-2 (Version None)
Quarter: 2011Q2

REPORT INFORMATION
  Report Type: 
  Country: None (occurrence: None)
  Receive Date: 20110623
  Receipt Date: 20110615
  Transmission Date: 20111010
  Serious: Yes (Hospitalization, Other)
  Sender: FDA-Public Use
  Company Number: US-US-EMD SERONO, INC.-7041246

PATIENT
  Sex: Female

DRUGS (4)
  1. AMITRIPTYLINE HCL [Concomitant]
  2. REBIF [Suspect]
     Indication: MULTIPLE SCLEROSIS
     Route: 058
     Dates: start: 20030317
  3. NEURONTIN [Concomitant]
  4. BLOOD PRESSURE PILLS [Concomitant]

REACTIONS (4)
  - FALL [None]
  - WRIST FRACTURE [None]
  - INTERVERTEBRAL DISC SPACE NARROWING [None]
  - UPPER LIMB FRACTURE [None]
